FAERS Safety Report 22631024 (Version 1)
Quarter: 2023Q2

REPORT INFORMATION
  Report Type: Report from Study
  Country: AR (occurrence: AR)
  Receive Date: 20230622
  Receipt Date: 20230622
  Transmission Date: 20230721
  Serious: Yes (Hospitalization, Other)
  Sender: FDA-Public Use
  Company Number: AR-TAKEDA-2022TUS084097

PATIENT
  Age: 38 Year
  Sex: Male

DRUGS (1)
  1. HUMAN IMMUNOGLOBULIN G\HYALURONIDASE RECOMBINANT HUMAN [Suspect]
     Active Substance: HUMAN IMMUNOGLOBULIN G\HYALURONIDASE RECOMBINANT HUMAN
     Indication: Humoral immune defect
     Dosage: 35 GRAM, Q4WEEKS
     Route: 058
     Dates: start: 20220908

REACTIONS (6)
  - Appendicectomy [Recovered/Resolved]
  - Application site oedema [Recovered/Resolved]
  - Application site pain [Recovered/Resolved]
  - Localised oedema [Recovered/Resolved]
  - Pyrexia [Recovered/Resolved]
  - Infusion site discomfort [Recovered/Resolved]

NARRATIVE: CASE EVENT DATE: 20221105
